FAERS Safety Report 8371622-0 (Version None)
Quarter: 2012Q2

REPORT INFORMATION
  Report Type: 
  Country: None (occurrence: None)
  Receive Date: 20120518
  Receipt Date: 20120502
  Transmission Date: 20120825
  Serious: Yes (Other)
  Sender: FDA-Public Use
  Company Number: US-AMGEN-USASP2011064465

PATIENT
  Age: 52 Year
  Sex: Female

DRUGS (2)
  1. XGEVA [Suspect]
     Indication: PRODUCT USED FOR UNKNOWN INDICATION
     Dosage: UNK
  2. PROLIA [Suspect]
     Indication: PRODUCT USED FOR UNKNOWN INDICATION

REACTIONS (13)
  - PARAESTHESIA ORAL [None]
  - LIP SWELLING [None]
  - PAROSMIA [None]
  - HYPOAESTHESIA ORAL [None]
  - FLUSHING [None]
  - ACCIDENTAL EXPOSURE [None]
  - ERYTHEMA [None]
  - DYSGEUSIA [None]
  - HEADACHE [None]
  - BLOOD PRESSURE INCREASED [None]
  - PRODUCT TASTE ABNORMAL [None]
  - TENSION [None]
  - FEELING ABNORMAL [None]
